FAERS Safety Report 9347380 (Version 2)
Quarter: 2013Q3

REPORT INFORMATION
  Report Type: Spontaneous
  Country: US (occurrence: US)
  Receive Date: 20130613
  Receipt Date: 20130722
  Transmission Date: 20140515
  Serious: Yes (Hospitalization)
  Sender: FDA-Public Use
  Company Number: US-PFIZER INC-2013174110

PATIENT
  Age: 39 Year
  Sex: Male

DRUGS (1)
  1. BENEFIX [Suspect]
     Indication: HAEMOPHILIA
     Dosage: 1000 IU, UNK
     Dates: start: 201012

REACTIONS (1)
  - Arthropathy [Unknown]
